FAERS Safety Report 5025719-3 (Version None)
Quarter: 2006Q2

REPORT INFORMATION
  Report Type: 
  Country: None (occurrence: None)
  Receive Date: 20060427
  Receipt Date: 20050720
  Transmission Date: 20061013
  Serious: Yes (Other)
  Sender: FDA-Public Use
  Company Number: 2005105454

PATIENT
  Age: 55 Year
  Sex: Female
  Weight: 54.4316 kg

DRUGS (5)
  1. ZITHROMAX [Suspect]
     Indication: SINUSITIS
     Dosage: QD INTERVAL: EVERY DAY, ORAL
     Route: 048
     Dates: start: 20041201, end: 20050501
  2. ^RIMADEX^ (ALL OTHER THERAPEUTIC PRODUCTS) [Concomitant]
  3. VITAMINS (VITAMINS) [Concomitant]
  4. SUPPLEMENTS (ALL OTHER THERAPEUTIC PRODUCTS) [Concomitant]
  5. VICODIN [Concomitant]

REACTIONS (1)
  - WHITE BLOOD CELL COUNT DECREASED [None]
